FAERS Safety Report 25784723 (Version 1)
Quarter: 2025Q3

REPORT INFORMATION
  Report Type: Spontaneous
  Country: GB (occurrence: GB)
  Receive Date: 20250910
  Receipt Date: 20250910
  Transmission Date: 20251021
  Serious: Yes (Other)
  Sender: MSN LABORATORIES PRIVATE LIMITED
  Company Number: None

PATIENT

DRUGS (2)
  1. ROSUVASTATIN [Suspect]
     Active Substance: ROSUVASTATIN
     Indication: Blood cholesterol increased
     Dosage: 5MG A DAY AT NIGHT
     Route: 065
     Dates: start: 20250715
  2. AMITRIPTYLINE [Concomitant]
     Active Substance: AMITRIPTYLINE
     Indication: Fibromyalgia
     Route: 065

REACTIONS (3)
  - Abdominal discomfort [Not Recovered/Not Resolved]
  - Abdominal distension [Unknown]
  - Abdominal pain [Unknown]

NARRATIVE: CASE EVENT DATE: 20250826
